FAERS Safety Report 15155385 (Version 2)
Quarter: 2018Q3

REPORT INFORMATION
  Report Type: Spontaneous
  Country: BE (occurrence: BE)
  Receive Date: 20180717
  Receipt Date: 20180928
  Transmission Date: 20181010
  Serious: Yes (Hospitalization, Other)
  Sender: FDA-Public Use
  Company Number: PHHY2018BE044305

PATIENT
  Age: 67 Year
  Sex: Female

DRUGS (2)
  1. COSENTYX [Suspect]
     Active Substance: SECUKINUMAB
     Dosage: UNK
     Route: 058
     Dates: start: 201712
  2. COSENTYX [Suspect]
     Active Substance: SECUKINUMAB
     Indication: PSORIATIC ARTHROPATHY
     Dosage: 300 MG, QMO
     Route: 058
     Dates: start: 201612, end: 201707

REACTIONS (9)
  - Abdominal pain [Unknown]
  - Pyrexia [Unknown]
  - Drug ineffective [Unknown]
  - Lower gastrointestinal haemorrhage [Unknown]
  - Diarrhoea [Unknown]
  - Psoriatic arthropathy [Unknown]
  - Colitis ulcerative [Recovering/Resolving]
  - Weight decreased [Unknown]
  - Condition aggravated [Unknown]

NARRATIVE: CASE EVENT DATE: 201705
